FAERS Safety Report 10155583 (Version 3)
Quarter: 2014Q2

REPORT INFORMATION
  Report Type: Report from Study
  Country: US (occurrence: US)
  Receive Date: 20140506
  Receipt Date: 20140529
  Transmission Date: 20141212
  Serious: Yes (Other)
  Sender: FDA-Public Use
  Company Number: PHEH2013US020181

PATIENT
  Age: 3 Year
  Sex: Female

DRUGS (7)
  1. AFINITOR [Suspect]
     Indication: ASTROCYTOMA, LOW GRADE
     Dosage: 5 MG, QD
     Route: 048
     Dates: start: 20130726, end: 201402
  2. AFINITOR [Suspect]
     Dosage: 2.5 MG ON ONE DAY AND 5 MG ON NEXT DAY
     Route: 048
     Dates: end: 201402
  3. AFINITOR [Suspect]
     Dosage: 2.5 MG ON ONE DAY AND 5 MG ON NEXT DAY
     Route: 048
     Dates: start: 201402
  4. TRILEPTAL [Suspect]
     Dosage: UNK
  5. TRILEPTAL [Suspect]
     Dosage: UNK
     Dates: start: 20140305
  6. TRILEPTAL [Suspect]
     Dosage: UNK
     Dates: start: 20140420
  7. MULTI-VIT [Concomitant]

REACTIONS (2)
  - Convulsion [Recovering/Resolving]
  - Nasopharyngitis [Unknown]
